FAERS Safety Report 14835186 (Version 1)
Quarter: 2018Q2

REPORT INFORMATION
  Report Type: Report from Study
  Country: AT (occurrence: AT)
  Receive Date: 20180502
  Receipt Date: 20180502
  Transmission Date: 20180711
  Serious: Yes (Other)
  Sender: FDA-Public Use
  Company Number: PHHY2016AT126176

PATIENT
  Age: 51 Year
  Sex: Male
  Weight: 67 kg

DRUGS (7)
  1. DABRAFENIB [Suspect]
     Active Substance: DABRAFENIB
     Dosage: 150 MG, QD
     Route: 048
     Dates: start: 20160919, end: 20160929
  2. MEKINIST [Suspect]
     Active Substance: TRAMETINIB DIMETHYL SULFOXIDE
     Indication: MALIGNANT MELANOMA
     Dosage: 2 MG, QD
     Route: 048
     Dates: start: 20160706, end: 20160912
  3. DABRAFENIB [Suspect]
     Active Substance: DABRAFENIB
     Dosage: 1 DF, BID
     Route: 048
     Dates: start: 20161014, end: 20161015
  4. DABRAFENIB [Suspect]
     Active Substance: DABRAFENIB
     Indication: MALIGNANT MELANOMA
     Dosage: 300 MG, QD
     Route: 048
     Dates: start: 20160706, end: 20160907
  5. DABRAFENIB [Suspect]
     Active Substance: DABRAFENIB
     Dosage: HALF DOSE
     Route: 048
  6. MEKINIST [Suspect]
     Active Substance: TRAMETINIB DIMETHYL SULFOXIDE
     Dosage: 1 MG, UNK
     Route: 048
     Dates: start: 20161014, end: 20161015
  7. MEKINIST [Suspect]
     Active Substance: TRAMETINIB DIMETHYL SULFOXIDE
     Dosage: 2 MG, QD (1 0 0)
     Route: 048
     Dates: start: 20160919, end: 20160929

REACTIONS (16)
  - Chills [Recovered/Resolved]
  - Iris adhesions [Unknown]
  - Ocular hyperaemia [Unknown]
  - Intraocular pressure increased [Recovered/Resolved]
  - Refraction disorder [Unknown]
  - Eye oedema [Recovered/Resolved]
  - Iridocyclitis [Recovered/Resolved with Sequelae]
  - Myalgia [Recovered/Resolved]
  - Uveitis [Recovered/Resolved]
  - Oedema peripheral [Recovered/Resolved]
  - Dermatitis [Recovered/Resolved]
  - Cataract [Unknown]
  - Pneumonia [Recovered/Resolved]
  - Visual impairment [Recovering/Resolving]
  - Vision blurred [Not Recovered/Not Resolved]
  - C-reactive protein increased [Recovered/Resolved]

NARRATIVE: CASE EVENT DATE: 20160907
